FAERS Safety Report 10594222 (Version 3)
Quarter: 2014Q4

REPORT INFORMATION
  Report Type: Spontaneous
  Country: BR (occurrence: BR)
  Receive Date: 20141119
  Receipt Date: 20141208
  Transmission Date: 20150529
  Serious: Yes (Hospitalization, Other)
  Sender: FDA-Public Use
  Company Number: BR-SA-2014SA157675

PATIENT
  Age: 51 Year
  Sex: Female

DRUGS (6)
  1. HUMALOG [Concomitant]
     Active Substance: INSULIN LISPRO
  2. LANTUS [Suspect]
     Active Substance: INSULIN GLARGINE
     Indication: DIABETES MELLITUS
     Route: 065
  3. LYXUMIA [Suspect]
     Active Substance: LIXISENATIDE
     Indication: DIABETES MELLITUS
     Route: 065
     Dates: start: 201409
  4. NOVORAPID [Concomitant]
     Active Substance: INSULIN ASPART
  5. LANTUS [Suspect]
     Active Substance: INSULIN GLARGINE
     Indication: DIABETES MELLITUS
     Route: 065
     Dates: start: 2006
  6. INSULIN PEN NOS [Concomitant]
     Active Substance: INSULIN NOS
     Indication: DEVICE THERAPY

REACTIONS (8)
  - Diarrhoea [Recovered/Resolved]
  - Eye pain [Recovered/Resolved]
  - Blood glucose increased [Recovered/Resolved]
  - Colitis ulcerative [Recovered/Resolved]
  - Vomiting [Recovered/Resolved]
  - Hypoglycaemia [Recovered/Resolved]
  - Haematochezia [Recovered/Resolved]
  - Glycosylated haemoglobin increased [Recovered/Resolved]

NARRATIVE: CASE EVENT DATE: 201408
